FAERS Safety Report 8613700-4 (Version None)
Quarter: 2012Q3

REPORT INFORMATION
  Report Type: 
  Country: None (occurrence: None)
  Receive Date: 20120823
  Receipt Date: 20120814
  Transmission Date: 20120928
  Serious: Yes (Hospitalization, Other)
  Sender: FDA-Public Use
  Company Number: US-BIOGENIDEC-2011BI041054

PATIENT
  Sex: Female

DRUGS (2)
  1. AVONEX [Suspect]
     Route: 030
  2. AVONEX [Suspect]
     Indication: MULTIPLE SCLEROSIS
     Route: 030
     Dates: start: 19990901

REACTIONS (7)
  - IMMUNODEFICIENCY COMMON VARIABLE [None]
  - CONVULSION [None]
  - AORTIC VALVE DISEASE [None]
  - CARDIOMEGALY [None]
  - AORTIC VALVE REPAIR [None]
  - SURGERY [None]
  - HAEMORRHAGE [None]
